FAERS Safety Report 21687037 (Version 1)
Quarter: 2022Q4

REPORT INFORMATION
  Report Type: Other
  Country: US (occurrence: None)
  Receive Date: 20221206
  Receipt Date: 20221206
  Transmission Date: 20230113
  Serious: No
  Sender: FDA-Public Use
  Company Number: US-ROCHE-3232612

PATIENT
  Age: 56 Year
  Sex: Female

DRUGS (3)
  1. OCREVUS [Suspect]
     Active Substance: OCRELIZUMAB
     Indication: Multiple sclerosis
     Dosage: YES
     Route: 042
     Dates: start: 20210510
  2. SIPONIMOD [Concomitant]
     Active Substance: SIPONIMOD
  3. AMANTADINE [Concomitant]
     Active Substance: AMANTADINE

REACTIONS (1)
  - Influenza [Not Recovered/Not Resolved]
